FAERS Safety Report 5343574-9 (Version None)
Quarter: 2007Q2

REPORT INFORMATION
  Report Type: 
  Country: None (occurrence: None)
  Receive Date: 20070416
  Receipt Date: 20070126
  Transmission Date: 20071010
  Serious: No
  Sender: FDA-Public Use
  Company Number: 2007SP000305

PATIENT
  Age: 86 Year
  Sex: Female
  Weight: 79.3795 kg

DRUGS (7)
  1. LUNESTA [Suspect]
     Indication: INSOMNIA
     Dosage: 1 MG; HS; ORAL
     Route: 048
     Dates: start: 20061201
  2. VERAPAMIL [Concomitant]
  3. ATORVASTATIN CALCIUM [Concomitant]
  4. FUROSEMIDE [Concomitant]
  5. METOPROLOL SUCCINATE [Concomitant]
  6. DIGOXIN [Concomitant]
  7. PANTOPRAZOLE SODIUM [Concomitant]

REACTIONS (2)
  - DRUG INEFFECTIVE [None]
  - INSOMNIA [None]
